FAERS Safety Report 6477070-2 (Version None)
Quarter: 2009Q4

REPORT INFORMATION
  Report Type: 
  Country: None (occurrence: None)
  Receive Date: 20091204
  Receipt Date: 20091204
  Transmission Date: 20100525
  Serious: No
  Sender: FDA-Public Use
  Company Number: None

PATIENT
  Age: 34 Year
  Sex: Female
  Weight: 50.3493 kg

DRUGS (1)
  1. BUPROPION HCL [Suspect]
     Indication: DEPRESSION
     Dosage: THREE TABLETS 1 X DAILY PO
     Route: 048
     Dates: start: 20091122, end: 20091203

REACTIONS (3)
  - CRYING [None]
  - DEPRESSION [None]
  - PRODUCT SUBSTITUTION ISSUE [None]
